FAERS Safety Report 9970369 (Version 2)
Quarter: 2014Q1

REPORT INFORMATION
  Report Type: Spontaneous
  Country: US (occurrence: US)
  Receive Date: 20140306
  Receipt Date: 20140306
  Transmission Date: 20141002
  Serious: No
  Sender: FDA-Public Use
  Company Number: US-ABBVIE-13P-163-1142607-00

PATIENT
  Age: 28 Year
  Sex: Female

DRUGS (5)
  1. HUMIRA [Suspect]
     Indication: PSORIATIC ARTHROPATHY
     Route: 058
     Dates: start: 201307
  2. PROGESTERONE [Concomitant]
     Indication: ANTIPHOSPHOLIPID SYNDROME
  3. PROGESTERONE [Concomitant]
     Indication: PROGESTERONE DECREASED
  4. LOVENOX [Concomitant]
     Indication: ANTIPHOSPHOLIPID SYNDROME
  5. LOVENOX [Concomitant]
     Indication: PROGESTERONE DECREASED

REACTIONS (1)
  - Injection site pain [Not Recovered/Not Resolved]
